FAERS Safety Report 13395998 (Version 1)
Quarter: 2017Q2

REPORT INFORMATION
  Report Type: Spontaneous
  Country: AU (occurrence: AU)
  Receive Date: 20170403
  Receipt Date: 20170403
  Transmission Date: 20170830
  Serious: Yes (Other)
  Sender: FDA-Public Use
  Company Number: AU-GLAXOSMITHKLINE-AU2017GSK045645

PATIENT

DRUGS (1)
  1. DICLOFENAC SODIUM. [Suspect]
     Active Substance: DICLOFENAC SODIUM
     Indication: PRODUCT USED FOR UNKNOWN INDICATION

REACTIONS (8)
  - Acidosis hyperchloraemic [Unknown]
  - Drug use disorder [Unknown]
  - Renal tubular acidosis [Unknown]
  - Muscular weakness [Unknown]
  - Microcytic anaemia [Unknown]
  - Overdose [Unknown]
  - Pain in extremity [Unknown]
  - Hypokalaemia [Unknown]
